FAERS Safety Report 8090803 (Version 2)
Quarter: 2014Q1

REPORT INFORMATION
  Report Type: Spontaneous
  Country: US (occurrence: US)
  Receive Date: 20110815
  Receipt Date: 20140127
  Transmission Date: 20141002
  Serious: Yes (Life-Threatening, Other)
  Sender: FDA-Public Use
  Company Number: US-BAYER-2011-072627

PATIENT
  Age: 27 Year
  Sex: Female

DRUGS (4)
  1. YAZ [Suspect]
  2. YASMIN [Suspect]
  3. OCELLA [Suspect]
  4. BENTYL [Concomitant]

REACTIONS (10)
  - Gallbladder disorder [Unknown]
  - Cholelithiasis [None]
  - Cholecystitis [Unknown]
  - Internal injury [Unknown]
  - Internal injury [Unknown]
  - Nephropathy [Unknown]
  - Pain [Unknown]
  - General physical health deterioration [None]
  - Anxiety [None]
  - Anhedonia [None]
